FAERS Safety Report 24394932 (Version 3)
Quarter: 2025Q2

REPORT INFORMATION
  Report Type: Spontaneous
  Country: US (occurrence: US)
  Receive Date: 20241004
  Receipt Date: 20250526
  Transmission Date: 20250717
  Serious: No
  Sender: LUPIN
  Company Number: US-LUPIN PHARMACEUTICALS INC.-2024-09311

PATIENT
  Age: 64 Year
  Weight: 70 kg

DRUGS (1)
  1. ALBUTEROL SULFATE [Suspect]
     Active Substance: ALBUTEROL SULFATE
     Indication: Asthma

REACTIONS (4)
  - Dyspnoea [Unknown]
  - Device leakage [Unknown]
  - Device delivery system issue [Unknown]
  - Device occlusion [Unknown]
